FAERS Safety Report 22606224 (Version 3)
Quarter: 2023Q4

REPORT INFORMATION
  Report Type: Spontaneous
  Country: FR (occurrence: FR)
  Receive Date: 20230615
  Receipt Date: 20231024
  Transmission Date: 20240109
  Serious: Yes (Hospitalization, Other)
  Sender: FDA-Public Use
  Company Number: None

PATIENT
  Age: 78 Year
  Sex: Female
  Weight: 68 kg

DRUGS (27)
  1. GLYCOPYRRONIUM\INDACATEROL [Suspect]
     Active Substance: GLYCOPYRRONIUM\INDACATEROL
     Indication: Chronic obstructive pulmonary disease
     Dosage: 1 DOSAGE FORM, QD, (1 UG/L, 1 UNIT QD))
     Route: 055
  2. GLYCOPYRRONIUM\INDACATEROL [Suspect]
     Active Substance: GLYCOPYRRONIUM\INDACATEROL
     Dosage: 1 DOSAGE FORM, QD
  3. GLYCOPYRRONIUM\INDACATEROL [Suspect]
     Active Substance: GLYCOPYRRONIUM\INDACATEROL
     Dosage: 1 DOSAGE FORM, QD (85 MCG/43 MCG)
     Dates: start: 201708
  4. OXALIPLATIN [Suspect]
     Active Substance: OXALIPLATIN
     Indication: Rectal cancer
     Dosage: 50 MG, CYCLIC
     Route: 042
     Dates: start: 2006, end: 2006
  5. VENTOLIN [Suspect]
     Active Substance: ALBUTEROL SULFATE
     Indication: Asthma
     Dosage: 1 DOSAGE FORM, (UG/L) PRN/1 INHALATION EN CAS D^ESSOUFFLEMENT
  6. BOTOX [Suspect]
     Active Substance: ONABOTULINUMTOXINA
     Indication: Anal incontinence
     Dosage: 500 ENZYME UNIT, UNK (500 UNITS, SINGLE/ 9 INJECTIONS)(500 DOSAGE FORM)
     Route: 030
     Dates: start: 201201
  7. BUMETANIDE [Suspect]
     Active Substance: BUMETANIDE
     Indication: Hypertension
     Dosage: 5 MG, UNK
     Route: 048
     Dates: start: 201708
  8. PULMICORT TURBUHALER [Suspect]
     Active Substance: BUDESONIDE
     Indication: Chronic obstructive pulmonary disease
     Dosage: 400 UG, QD
     Dates: start: 2015
  9. PULMICORT TURBUHALER [Suspect]
     Active Substance: BUDESONIDE
     Indication: Asthma
     Dosage: 200 UG, Q12H
     Dates: start: 2015
  10. PULMICORT TURBUHALER [Suspect]
     Active Substance: BUDESONIDE
     Dosage: 200 UG, Q12H, BID
     Route: 055
  11. SINGULAIR [Suspect]
     Active Substance: MONTELUKAST SODIUM
     Indication: Asthma
     Dosage: 100 MG
     Route: 048
  12. SINGULAIR [Suspect]
     Active Substance: MONTELUKAST SODIUM
     Dosage: 100 MG, UNK
     Route: 048
     Dates: start: 2015
  13. SINGULAIR [Suspect]
     Active Substance: MONTELUKAST SODIUM
     Dosage: 10 MG, QD
     Route: 048
  14. FLUCONAZOLE [Suspect]
     Active Substance: FLUCONAZOLE
     Indication: Fungal infection
     Dosage: 50 ?G/L, QD
     Route: 002
  15. FLUCONAZOLE [Suspect]
     Active Substance: FLUCONAZOLE
     Dosage: 50 BAINS DE BOUCHE
     Route: 002
     Dates: start: 201708
  16. PREDNISONE [Suspect]
     Active Substance: PREDNISONE
     Indication: Chronic obstructive pulmonary disease
     Dosage: 12 MG, QD
     Route: 048
     Dates: start: 201708
  17. POTASSIUM CHLORIDE [Suspect]
     Active Substance: POTASSIUM CHLORIDE
     Indication: Hypokalaemia
     Dosage: 2 DOSAGE FORM, QD
     Route: 048
     Dates: start: 201708
  18. THEOPHYLLINE [Suspect]
     Active Substance: THEOPHYLLINE
     Indication: Chronic obstructive pulmonary disease
     Dosage: 300 MG, BID
     Route: 048
  19. THEOPHYLLINE [Suspect]
     Active Substance: THEOPHYLLINE
     Dosage: 300 MG, Q12H (BID)
     Route: 048
  20. THEOPHYLLINE [Suspect]
     Active Substance: THEOPHYLLINE
     Dosage: 600 MG, QD
     Route: 048
  21. THEOPHYLLINE [Suspect]
     Active Substance: THEOPHYLLINE
     Dosage: 2 DF (300MG)
     Route: 048
     Dates: start: 2015
  22. XELODA [Suspect]
     Active Substance: CAPECITABINE
     Indication: Rectal cancer
     Dosage: 825 MG/M2, UNK
     Route: 048
  23. XELODA [Suspect]
     Active Substance: CAPECITABINE
     Dosage: 825 MG/M2, UNK
     Route: 048
     Dates: start: 2006, end: 2006
  24. ALBUTEROL [Suspect]
     Active Substance: ALBUTEROL
     Indication: Asthma
     Dosage: 1 DF, PRN/ 1 INHALATION EN CAS D^ESSOUFFLEMENT
     Dates: start: 201708
  25. OXALIPLATIN [Suspect]
     Active Substance: OXALIPLATIN
     Indication: Rectal cancer
     Dosage: 50 MG, UNK
     Route: 042
     Dates: start: 2006, end: 2006
  26. BOTULINUM TOXIN TYPE A [Suspect]
     Active Substance: BOTULINUM TOXIN TYPE A
     Indication: Anal incontinence
     Dosage: 500 UNITS, SINGLE/ 9 INJECTIONS DE 500 UNIT?S
     Route: 030
     Dates: start: 201201, end: 201201
  27. BOTULINUM TOXIN TYPE A [Suspect]
     Active Substance: BOTULINUM TOXIN TYPE A
     Dosage: 500 UNITS, SINGLE
     Route: 030

REACTIONS (7)
  - Dilated cardiomyopathy [Not Recovered/Not Resolved]
  - Left ventricular failure [Not Recovered/Not Resolved]
  - Arteriosclerosis coronary artery [Not Recovered/Not Resolved]
  - Off label use [Unknown]
  - Product use in unapproved indication [Unknown]
  - Product prescribing issue [Unknown]
  - Overdose [Unknown]

NARRATIVE: CASE EVENT DATE: 20170801
